FAERS Safety Report 5365266-2 (Version None)
Quarter: 2007Q2

REPORT INFORMATION
  Report Type: 
  Country: None (occurrence: None)
  Receive Date: 20070530
  Receipt Date: 20070313
  Transmission Date: 20071010
  Serious: No
  Sender: FDA-Public Use
  Company Number: 2006PV021809

PATIENT
  Age: 57 Year
  Sex: Female
  Weight: 143.7903 kg

DRUGS (6)
  1. BYETTA [Suspect]
     Indication: DIABETES MELLITUS NON-INSULIN-DEPENDENT
     Dosage: 10 MCG;BID;SC 5 MCG;BID;SC 10 MCG;BID;SC 5 MCG;BID;SC
     Route: 058
     Dates: start: 20060901, end: 20060930
  2. BYETTA [Suspect]
     Indication: DIABETES MELLITUS NON-INSULIN-DEPENDENT
     Dosage: 10 MCG;BID;SC 5 MCG;BID;SC 10 MCG;BID;SC 5 MCG;BID;SC
     Route: 058
     Dates: start: 20060801, end: 20061130
  3. BYETTA [Suspect]
     Indication: DIABETES MELLITUS NON-INSULIN-DEPENDENT
     Dosage: 10 MCG;BID;SC 5 MCG;BID;SC 10 MCG;BID;SC 5 MCG;BID;SC
     Route: 058
     Dates: start: 20061001
  4. BYETTA [Suspect]
     Indication: DIABETES MELLITUS NON-INSULIN-DEPENDENT
     Dosage: 10 MCG;BID;SC 5 MCG;BID;SC 10 MCG;BID;SC 5 MCG;BID;SC
     Route: 058
     Dates: start: 20061201
  5. HUMULIN R [Concomitant]
  6. METFORMIN HCL [Concomitant]

REACTIONS (12)
  - ANOREXIA [None]
  - BLOOD GLUCOSE INCREASED [None]
  - DRY SKIN [None]
  - EPISTAXIS [None]
  - IRRITABILITY [None]
  - MUSCLE SPASMS [None]
  - NASAL DRYNESS [None]
  - NAUSEA [None]
  - RASH [None]
  - SOMNOLENCE [None]
  - VAGINAL HAEMORRHAGE [None]
  - WEIGHT DECREASED [None]
